FAERS Safety Report 4970154-7 (Version None)
Quarter: 2006Q2

REPORT INFORMATION
  Report Type: 
  Country: None (occurrence: None)
  Receive Date: 20060406
  Receipt Date: 20060324
  Transmission Date: 20061013
  Serious: Yes (Other)
  Sender: FDA-Public Use
  Company Number: 2006042329

PATIENT
  Sex: Female

DRUGS (2)
  1. DETROL LA [Suspect]
     Indication: URINARY INCONTINENCE
     Dosage: 4 MG (4 MG, 1 IN 1 D)
     Dates: start: 20060101
  2. ATIVAN [Concomitant]

REACTIONS (4)
  - CATARACT OPERATION [None]
  - DIARRHOEA [None]
  - DRUG INEFFECTIVE [None]
  - VISUAL ACUITY REDUCED [None]
